FAERS Safety Report 13313936 (Version 1)
Quarter: 2017Q1

REPORT INFORMATION
  Report Type: Spontaneous
  Country: US (occurrence: US)
  Receive Date: 20170309
  Receipt Date: 20170309
  Transmission Date: 20170428
  Serious: Yes (Hospitalization)
  Sender: FDA-Public Use
  Company Number: US-TORRENT-00002578

PATIENT
  Sex: Female

DRUGS (4)
  1. PROPRANOLOL [Suspect]
     Active Substance: PROPRANOLOL HYDROCHLORIDE
  2. AMLODIPINE [Suspect]
     Active Substance: AMLODIPINE BESYLATE
  3. CLONIDINE. [Suspect]
     Active Substance: CLONIDINE
  4. CAPTOPRIL. [Suspect]
     Active Substance: CAPTOPRIL

REACTIONS (4)
  - Left ventricular dilatation [Recovered/Resolved]
  - Drug ineffective [Unknown]
  - Cardiac failure congestive [Recovered/Resolved]
  - Left ventricular hypertrophy [Recovered/Resolved]
